FAERS Safety Report 4536541-6 (Version None)
Quarter: 2004Q4

REPORT INFORMATION
  Report Type: 
  Country: None (occurrence: None)
  Receive Date: 20041220
  Receipt Date: 20041206
  Transmission Date: 20050328
  Serious: Yes (Hospitalization, Other)
  Sender: FDA-Public Use
  Company Number: 2004106889

PATIENT
  Age: 51 Year
  Sex: Male
  Weight: 65.7716 kg

DRUGS (10)
  1. TAO [Suspect]
     Indication: ASTHMA
     Dosage: 250 MG (250 MG, 1 IN 1 D), ORAL
     Route: 048
     Dates: start: 19850101
  2. PREDNISONE TAB [Suspect]
     Indication: ASTHMA
     Dosage: 80 MG
     Dates: start: 19850101
  3. METHYLPREDNISOLONE TABLET (METHYLPREDNISOLONE) [Suspect]
     Indication: ASTHMA
     Dosage: 80 MG
     Dates: start: 19930101
  4. ERYTHROMYCIN [Suspect]
     Indication: ASTHMA
     Dates: start: 20040101
  5. CROMOGLICATE SODIUM (CROMOGLICATE SODIUM) [Suspect]
     Indication: ILL-DEFINED DISORDER
  6. THEOPHYLLINE [Suspect]
     Indication: ASTHMA
     Dosage: 400 MG, 1 D
     Dates: start: 20040101
  7. FLUTICASONE PROPIONATE [Concomitant]
  8. SERETIDE MITE (FLUTICASONE PROPIONATE, SALMETEROL) [Concomitant]
  9. COMBIVENT [Concomitant]
  10. MONTELUKAST (MONTELUKAST) [Concomitant]

REACTIONS (5)
  - ASTHMA [None]
  - CONDITION AGGRAVATED [None]
  - DRUG INEFFECTIVE [None]
  - POLYP [None]
  - SINUSITIS [None]
